FAERS Safety Report 4300278-9 (Version None)
Quarter: 2004Q1

REPORT INFORMATION
  Report Type: 
  Country: None (occurrence: None)
  Receive Date: 20040220
  Receipt Date: 20031015
  Transmission Date: 20041129
  Serious: Yes (Other)
  Sender: FDA-Public Use
  Company Number: WAES 0310USA02110

PATIENT
  Age: 62 Year
  Sex: Male
  Weight: 60 kg

DRUGS (3)
  1. ASPIRIN [Concomitant]
  2. ZOCOR [Suspect]
     Indication: TYPE IIA HYPERLIPIDAEMIA
     Route: 048
  3. ZOCOR [Suspect]
     Indication: BLOOD CHOLESTEROL INCREASED
     Route: 048

REACTIONS (2)
  - VESTIBULAR ATAXIA [None]
  - VESTIBULAR DISORDER [None]
